FAERS Safety Report 5857311-2 (Version None)
Quarter: 2008Q3

REPORT INFORMATION
  Report Type: 
  Country: None (occurrence: None)
  Receive Date: 20080822
  Receipt Date: 20080808
  Transmission Date: 20090109
  Serious: Yes (Hospitalization)
  Sender: FDA-Public Use
  Company Number: 8035995

PATIENT

DRUGS (1)
  1. KEPPRA [Suspect]

REACTIONS (3)
  - CARDIAC DISORDER [None]
  - DIPLOPIA [None]
  - TRANSIENT ISCHAEMIC ATTACK [None]
